FAERS Safety Report 8430015-8 (Version None)
Quarter: 2012Q2

REPORT INFORMATION
  Report Type: 
  Country: None (occurrence: None)
  Receive Date: 20120612
  Receipt Date: 20120601
  Transmission Date: 20120825
  Serious: Yes (Hospitalization, Other)
  Sender: FDA-Public Use
  Company Number: US-JNJFOC-20120518226

PATIENT
  Sex: Male
  Weight: 119.75 kg

DRUGS (6)
  1. REMICADE [Suspect]
     Route: 042
     Dates: start: 20100101
  2. LEVEMIR [Suspect]
     Indication: DIABETES MELLITUS
     Dosage: 52 UNITS/ AT NIGHT/SUBCUTANEOUS
     Route: 058
  3. COLCHICINE [Suspect]
     Indication: GOUT
     Route: 048
     Dates: start: 20120501
  4. REMICADE [Suspect]
     Indication: CROHN'S DISEASE
     Route: 042
     Dates: start: 20040901, end: 20100101
  5. NOVOLOG [Suspect]
     Indication: DIABETES MELLITUS
     Dosage: 40 UNITS/SOLUTION BEFORE MEALS
     Route: 058
     Dates: start: 20110101, end: 20110101
  6. METHOTREXATE [Suspect]
     Indication: INTERVERTEBRAL DISC PROTRUSION
     Route: 048
     Dates: start: 20110101, end: 20110101

REACTIONS (15)
  - CHOLELITHIASIS [None]
  - FISTULA [None]
  - INFECTION [None]
  - OXYGEN SATURATION DECREASED [None]
  - INTERVERTEBRAL DISC DEGENERATION [None]
  - DECREASED IMMUNE RESPONSIVENESS [None]
  - PERINEAL CYST [None]
  - GOUT [None]
  - ABASIA [None]
  - CONVULSION [None]
  - DIABETES MELLITUS [None]
  - ABNORMAL LOSS OF WEIGHT [None]
  - INTERVERTEBRAL DISC PROTRUSION [None]
  - HEART RATE INCREASED [None]
  - DIARRHOEA [None]
